FAERS Safety Report 21240129 (Version 1)
Quarter: 2022Q3

REPORT INFORMATION
  Report Type: Spontaneous
  Country: US (occurrence: None)
  Receive Date: 20220821
  Receipt Date: 20220821
  Transmission Date: 20221027
  Serious: No
  Sender: FDA-Public Use
  Company Number: None

PATIENT
  Age: 29 Year
  Sex: Female
  Weight: 52.2 kg

DRUGS (3)
  1. ICY HOT ORIGINAL FOAM [Suspect]
     Active Substance: MENTHOL
     Indication: Pain
     Dosage: FREQUENCY : 3 TIMES A DAY;?
     Route: 061
     Dates: start: 20220821
  2. TRI-LO-SPRINTEC [Concomitant]
     Active Substance: ETHINYL ESTRADIOL\NORGESTIMATE
  3. VITAMIN D [Concomitant]
     Active Substance: VITAMIN D NOS

REACTIONS (3)
  - Application site erythema [None]
  - Pain [None]
  - Skin warm [None]

NARRATIVE: CASE EVENT DATE: 20220821
